FAERS Safety Report 6035678-2 (Version None)
Quarter: 2009Q1

REPORT INFORMATION
  Report Type: 
  Country: None (occurrence: None)
  Receive Date: 20090112
  Receipt Date: 20090112
  Transmission Date: 20090719
  Serious: Yes (Hospitalization)
  Sender: FDA-Public Use
  Company Number: None

PATIENT
  Age: 27 Year
  Sex: Male

DRUGS (3)
  1. BUPROPION HCL [Suspect]
     Indication: SMOKING CESSATION THERAPY
     Dosage: 1 TAB DAILYX3DAYS;BID OPHTHALMIC
     Route: 047
     Dates: start: 20081031, end: 20081110
  2. NICOTINE [Suspect]
     Indication: SMOKING CESSATION THERAPY
     Dosage: 1 PATCH DAILY
     Dates: start: 20081031, end: 20081110
  3. TRETINOIN [Concomitant]

REACTIONS (5)
  - ARTHRALGIA [None]
  - HYPERSENSITIVITY [None]
  - LIP SWELLING [None]
  - ODYNOPHAGIA [None]
  - RASH PRURITIC [None]
